FAERS Safety Report 23131372 (Version 3)
Quarter: 2024Q2

REPORT INFORMATION
  Report Type: Spontaneous
  Country: DE (occurrence: DE)
  Receive Date: 20231031
  Receipt Date: 20240605
  Transmission Date: 20240716
  Serious: Yes (Hospitalization, Other)
  Sender: FDA-Public Use
  Company Number: None

PATIENT
  Age: 78 Year
  Sex: Male

DRUGS (24)
  1. DEXAMETHASONE [Suspect]
     Active Substance: DEXAMETHASONE
     Indication: Plasma cell myeloma
     Dosage: 20.000MG QD
     Route: 042
     Dates: start: 20200622, end: 20200623
  2. DEXAMETHASONE [Suspect]
     Active Substance: DEXAMETHASONE
     Dosage: 1X20 MG AT 14-DAY INTERVAL WITHOUT ANY OTHER CYTOSTATICS
     Route: 048
     Dates: start: 20200817, end: 20200921
  3. DEXAMETHASONE [Suspect]
     Active Substance: DEXAMETHASONE
     Dosage: 1 TIME PER WEEK
     Route: 048
     Dates: start: 20230103, end: 20230328
  4. DEXAMETHASONE [Suspect]
     Active Substance: DEXAMETHASONE
     Dosage: 1X20 MG AT 14-DAY INTERVAL WITHOUT ANY OTHER CYTOSTATICS
     Route: 048
  5. DEXAMETHASONE [Suspect]
     Active Substance: DEXAMETHASONE
     Indication: Plasma cell myeloma
     Dosage: 20.000MG
     Route: 048
     Dates: start: 20200713, end: 20200810
  6. DEXAMETHASONE [Suspect]
     Active Substance: DEXAMETHASONE
     Dosage: 20.000MG
     Route: 048
     Dates: start: 20200629, end: 20200706
  7. DEXAMETHASONE [Suspect]
     Active Substance: DEXAMETHASONE
     Dosage: 2X20 MG AT 14-DAY INTERVAL WITH OTHER CYTOSTATIC
     Route: 048
  8. DEXAMETHASONE [Suspect]
     Active Substance: DEXAMETHASONE
     Dosage: 20.000MG
     Route: 042
     Dates: start: 20200629, end: 20200706
  9. DEXAMETHASONE [Suspect]
     Active Substance: DEXAMETHASONE
     Dosage: 2X20 MG AT 14-DAY INTERVAL WITH OTHER CYTOSTATIC
     Route: 048
     Dates: start: 20200824, end: 20200921
  10. DEXAMETHASONE [Suspect]
     Active Substance: DEXAMETHASONE
     Dosage: UNK
     Route: 065
  11. DARATUMUMAB [Suspect]
     Active Substance: DARATUMUMAB
     Dosage: THE DOSE OF 16 MG/KG WAS ADMINISTERED ONLY EVERY TWO WEEKS
     Route: 042
     Dates: start: 20200824, end: 20200921
  12. DARATUMUMAB [Suspect]
     Active Substance: DARATUMUMAB
     Dosage: THE FIRST DOSE WAS DISTRIBUTED OVER TWO DAYS AT 8 MG/KG EACH
     Route: 042
     Dates: start: 20200629, end: 20200810
  13. DARATUMUMAB [Suspect]
     Active Substance: DARATUMUMAB
     Dosage: 8.000MG/KG QD
     Route: 042
     Dates: start: 20200622, end: 20200623
  14. DARATUMUMAB [Suspect]
     Active Substance: DARATUMUMAB
     Dosage: 992 MG
     Route: 042
     Dates: start: 20230102, end: 20230327
  15. DARATUMUMAB [Suspect]
     Active Substance: DARATUMUMAB
     Dosage: THE DOSE OF 16 MG/KG WAS ADMINISTERED ONLY EVERY TWO WEEKS
     Route: 042
  16. DARATUMUMAB [Suspect]
     Active Substance: DARATUMUMAB
     Indication: Plasma cell myeloma
     Dosage: THE FIRST DOSE WAS DISTRIBUTED OVER TWO DAYS AT 8 MG/KG EACH
     Route: 042
  17. DENOSUMAB [Suspect]
     Active Substance: DENOSUMAB
     Indication: Plasma cell myeloma
     Dosage: 120.000MG
     Route: 058
     Dates: start: 20200831, end: 20200831
  18. REVLIMID [Suspect]
     Active Substance: LENALIDOMIDE
     Dosage: 10.000MG QD
     Route: 048
     Dates: start: 20200831, end: 20200920
  19. REVLIMID [Suspect]
     Active Substance: LENALIDOMIDE
     Indication: Plasma cell myeloma
     Dosage: 25.000MG QD
     Route: 048
     Dates: start: 20200622, end: 20200712
  20. REVLIMID [Suspect]
     Active Substance: LENALIDOMIDE
     Dosage: 25.000MG QD
     Route: 048
     Dates: start: 20200720, end: 20200822
  21. REVLIMID [Suspect]
     Active Substance: LENALIDOMIDE
     Dosage: QAM
     Route: 048
     Dates: start: 20221212, end: 20230101
  22. REVLIMID [Suspect]
     Active Substance: LENALIDOMIDE
     Dosage: QAM
     Route: 048
     Dates: start: 20230120, end: 20230129
  23. REVLIMID [Suspect]
     Active Substance: LENALIDOMIDE
     Dosage: QAM
     Route: 048
     Dates: start: 20230206, end: 20230226
  24. REVLIMID [Suspect]
     Active Substance: LENALIDOMIDE
     Dosage: QAM
     Route: 048
     Dates: start: 20230403, end: 20230423

REACTIONS (2)
  - Cardiac failure [Recovered/Resolved]
  - Pleural effusion [Recovering/Resolving]

NARRATIVE: CASE EVENT DATE: 20230424
